FAERS Safety Report 24540037 (Version 1)
Quarter: 2024Q4

REPORT INFORMATION
  Report Type: Report from Study
  Country: CA (occurrence: CA)
  Receive Date: 20241023
  Receipt Date: 20241023
  Transmission Date: 20250115
  Serious: Yes (Hospitalization)
  Sender: EMD SERONO INC
  Company Number: CA-Merck Healthcare KGaA-2024055371

PATIENT
  Sex: Female

DRUGS (1)
  1. MAVENCLAD [Suspect]
     Active Substance: CLADRIBINE
     Indication: Multiple sclerosis
     Dosage: YEAR ONE WEEK ONE
     Route: 048
     Dates: start: 20240410

REACTIONS (1)
  - Lung disorder [Unknown]
